FAERS Safety Report 14664785 (Version 1)
Quarter: 2018Q1

REPORT INFORMATION
  Report Type: Spontaneous
  Country: AM (occurrence: AM)
  Receive Date: 20180321
  Receipt Date: 20180321
  Transmission Date: 20180509
  Serious: Yes (Other)
  Sender: FDA-Public Use
  Company Number: AM-PFIZER INC-2018115023

PATIENT
  Age: 56 Year
  Sex: Male

DRUGS (14)
  1. LINEZOLID. [Suspect]
     Active Substance: LINEZOLID
     Indication: PULMONARY TUBERCULOSIS
     Dosage: 600 UNK, 1X/DAY
     Dates: start: 20170223, end: 20170515
  2. CYCLOSERINE. [Suspect]
     Active Substance: CYCLOSERINE
     Indication: PULMONARY TUBERCULOSIS
     Dosage: 750 UNK, 1X/DAY
     Dates: start: 20160819, end: 20170214
  3. FTC [Concomitant]
     Active Substance: EMTRICITABINE
     Dosage: UNK
     Dates: start: 20160906, end: 20180202
  4. DELAMANID [Suspect]
     Active Substance: DELAMANID
     Indication: PULMONARY TUBERCULOSIS
     Dosage: 200 UNK, 1X/DAY
     Dates: start: 20170223, end: 20170329
  5. CLOFAZIMINE [Suspect]
     Active Substance: CLOFAZIMINE
     Indication: PULMONARY TUBERCULOSIS
     Dosage: 200/100, 1X/DAY
     Dates: start: 20170223, end: 20170511
  6. MOXIFLOXACIN. [Suspect]
     Active Substance: MOXIFLOXACIN
     Dosage: 400 UNK, 1X/DAY
     Dates: start: 20170712, end: 20180202
  7. VITAMIN B6 [Concomitant]
     Active Substance: PYRIDOXINE HYDROCHLORIDE
     Dosage: UNK
  8. EFAVIRENZ. [Concomitant]
     Active Substance: EFAVIRENZ
     Dosage: UNK
     Dates: start: 20160906, end: 20180202
  9. LINEZOLID. [Suspect]
     Active Substance: LINEZOLID
     Dosage: 600 UNK, 1X/DAY
     Dates: start: 20170706, end: 20180202
  10. CYCLOSERINE. [Suspect]
     Active Substance: CYCLOSERINE
     Dosage: 750 UNK, 1X/DAY
     Dates: start: 20170717, end: 20180202
  11. MOXIFLOXACIN. [Suspect]
     Active Substance: MOXIFLOXACIN
     Indication: PULMONARY TUBERCULOSIS
     Dosage: 400 UNK, 1X/DAY
     Dates: start: 20170223, end: 20170511
  12. DELAMANID [Suspect]
     Active Substance: DELAMANID
     Dosage: 200 UNK, 1X/DAY
     Dates: start: 20170717, end: 20171204
  13. CLOFAZIMINE [Suspect]
     Active Substance: CLOFAZIMINE
     Dosage: 200/100, 1X/DAY
     Dates: start: 20170708, end: 20180202
  14. TDF [Concomitant]
     Active Substance: DILOXANIDE FUROATE\TINIDAZOLE
     Dosage: UNK
     Dates: start: 20160906, end: 20180202

REACTIONS (4)
  - Acute kidney injury [Not Recovered/Not Resolved]
  - Anxiety [Unknown]
  - Hypersensitivity [Unknown]
  - Blood creatinine increased [Unknown]

NARRATIVE: CASE EVENT DATE: 20180131
